FAERS Safety Report 9214937 (Version 2)
Quarter: 2013Q2

REPORT INFORMATION
  Report Type: Report from Study
  Country: JP (occurrence: JP)
  Receive Date: 20130405
  Receipt Date: 20130517
  Transmission Date: 20140414
  Serious: Yes (Hospitalization)
  Sender: FDA-Public Use
  Company Number: JP-GLAXOSMITHKLINE-B0879257A

PATIENT
  Age: 87 Year
  Sex: Female
  Weight: 27 kg

DRUGS (12)
  1. REVOLADE [Suspect]
     Indication: IDIOPATHIC THROMBOCYTOPENIC PURPURA
     Route: 048
     Dates: start: 20110111, end: 20110724
  2. REVOLADE [Suspect]
     Indication: IDIOPATHIC THROMBOCYTOPENIC PURPURA
     Route: 048
     Dates: start: 20110725, end: 20121010
  3. REVOLADE [Suspect]
     Indication: IDIOPATHIC THROMBOCYTOPENIC PURPURA
     Route: 048
     Dates: start: 20121011
  4. JUVELA N [Concomitant]
     Indication: HYPERTENSION
     Route: 048
  5. NORVASC [Concomitant]
     Indication: HYPERTENSION
     Route: 048
  6. SELBEX [Concomitant]
     Indication: PROPHYLAXIS
     Route: 048
  7. BONALON [Concomitant]
     Indication: OSTEOPOROSIS
     Route: 048
  8. MS REISHIPPU [Concomitant]
     Indication: BACK PAIN
     Route: 062
  9. EKSALB [Concomitant]
     Indication: DECUBITUS ULCER
     Route: 061
     Dates: start: 20110502
  10. MAGLAX [Concomitant]
     Indication: CONSTIPATION
     Route: 048
     Dates: start: 20111222
  11. CALONAL [Concomitant]
     Indication: ABDOMINAL PAIN UPPER
     Route: 048
     Dates: start: 20111222
  12. GRAMALIL [Concomitant]
     Indication: DYSKINESIA
     Route: 048
     Dates: start: 20111226

REACTIONS (5)
  - Blepharitis [Recovering/Resolving]
  - Nasopharyngitis [Recovering/Resolving]
  - Pyrexia [Recovering/Resolving]
  - Cardiac failure [Recovering/Resolving]
  - Atrial fibrillation [Not Recovered/Not Resolved]
